FAERS Safety Report 8985465 (Version 1)
Quarter: 2012Q4

REPORT INFORMATION
  Report Type: 
  Country: BR (occurrence: BR)
  Receive Date: 20121226
  Receipt Date: 20121226
  Transmission Date: 20130627
  Serious: Yes (Death, Hospitalization, Other)
  Sender: FDA-Public Use
  Company Number: BR-PFIZER INC-2012324466

PATIENT
  Sex: Female

DRUGS (7)
  1. ZOLOFT [Suspect]
     Indication: ANXIETY
     Dosage: 100 mg, 1x/day
     Route: 048
     Dates: start: 1994, end: 1999
  2. XALATAN [Suspect]
     Indication: GLAUCOMA
     Dosage: 1 drop each eye (1.5ug each eye), 1x/day
     Route: 047
     Dates: start: 2008, end: 20110311
  3. LIPITOR [Suspect]
     Dosage: 5mg, 1x/day
     Route: 048
     Dates: start: 2004
  4. LIPITOR [Suspect]
     Dosage: taking 1 tablet (10mg) after lunch
     Dates: end: 20110311
  5. ASPIRIN [Concomitant]
     Dosage: UNK
  6. DILACORON [Concomitant]
     Dosage: UNK
  7. MONOCORDIL [Concomitant]
     Dosage: UNK

REACTIONS (7)
  - Myocardial infarction [Fatal]
  - Cardiopulmonary failure [Fatal]
  - Feeling abnormal [Unknown]
  - Malaise [Unknown]
  - Cataract [Unknown]
  - Cataract [Unknown]
  - Drug ineffective [Unknown]
